FAERS Safety Report 19332414 (Version 1)
Quarter: 2021Q2

REPORT INFORMATION
  Report Type: Spontaneous
  Country: NL (occurrence: NL)
  Receive Date: 20210529
  Receipt Date: 20210529
  Transmission Date: 20210717
  Serious: Yes (Hospitalization, Congenital Anomaly, Other)
  Sender: FDA-Public Use
  Company Number: NL-AUROBINDO-AUR-APL-2021-022361

PATIENT
  Sex: Male

DRUGS (4)
  1. PHYTOMENADIONE [Suspect]
     Active Substance: PHYTONADIONE
     Indication: PRODUCT USED FOR UNKNOWN INDICATION
     Dosage: 10 MILLIGRAM, DAILY
     Route: 064
  2. PHYTOMENADIONE [Suspect]
     Active Substance: PHYTONADIONE
     Dosage: 1 MILLIGRAM
     Route: 065
  3. FOLIC ACID. [Suspect]
     Active Substance: FOLIC ACID
     Indication: PRODUCT USED FOR UNKNOWN INDICATION
     Dosage: 5 MILLIGRAM, DAILY
     Route: 064
  4. VALPROATE SODIUM. [Suspect]
     Active Substance: VALPROATE SODIUM
     Indication: PRODUCT USED FOR UNKNOWN INDICATION
     Dosage: 1000 MILLIGRAM, TWO TIMES A DAY
     Route: 064

REACTIONS (14)
  - Plagiocephaly [Unknown]
  - Cryptorchism [Unknown]
  - Drug withdrawal syndrome neonatal [Unknown]
  - Foetal exposure during pregnancy [Unknown]
  - Hypoglycaemia [Unknown]
  - Hypospadias [Unknown]
  - Nipple disorder [Unknown]
  - Foetal anticonvulsant syndrome [Unknown]
  - Syndactyly [Unknown]
  - Dysmorphism [Unknown]
  - Apnoea [Unknown]
  - Congenital anomaly [Unknown]
  - Tremor [Unknown]
  - Bradycardia [Unknown]
